FAERS Safety Report 15098579 (Version 1)
Quarter: 2018Q3

REPORT INFORMATION
  Report Type: Spontaneous
  Country: GB (occurrence: GB)
  Receive Date: 20180702
  Receipt Date: 20180702
  Transmission Date: 20181010
  Serious: Yes (Other)
  Sender: FDA-Public Use
  Company Number: GB-MYLANLABS-2018M1043257

PATIENT
  Sex: Male

DRUGS (5)
  1. ZONISAMIDE. [Suspect]
     Active Substance: ZONISAMIDE
     Indication: PRODUCT USED FOR UNKNOWN INDICATION
     Dosage: 300 MG, QD
     Route: 048
  2. PERAMPANEL [Suspect]
     Active Substance: PERAMPANEL
     Indication: EPILEPSY
     Dosage: MAXIMUM DOSE UNKNOWN
     Route: 048
  3. PERAMPANEL [Suspect]
     Active Substance: PERAMPANEL
     Indication: EPILEPSY
     Dosage: UNKNOWN
     Route: 048
  4. ZONISAMIDE. [Suspect]
     Active Substance: ZONISAMIDE
     Dosage: UNKNOWN
     Route: 048
  5. ZONISAMIDE. [Suspect]
     Active Substance: ZONISAMIDE
     Indication: EPILEPSY
     Dosage: 400 MG, QD
     Route: 048

REACTIONS (4)
  - Aphasia [Unknown]
  - Irritability [Unknown]
  - Drug ineffective [Unknown]
  - Language disorder [Unknown]
